FAERS Safety Report 8304295-3 (Version None)
Quarter: 2012Q2

REPORT INFORMATION
  Report Type: 
  Country: None (occurrence: None)
  Receive Date: 20120423
  Receipt Date: 20120423
  Transmission Date: 20120825
  Serious: Yes (Other)
  Sender: FDA-Public Use
  Company Number: None

PATIENT
  Age: 70 Year
  Sex: Male
  Weight: 81.646 kg

DRUGS (1)
  1. DONEPEZIL HCL [Suspect]
     Indication: DEMENTIA ALZHEIMER'S TYPE
     Dates: start: 20120401, end: 20120420

REACTIONS (5)
  - URINE OUTPUT INCREASED [None]
  - PRODUCT SUBSTITUTION ISSUE [None]
  - CONFUSIONAL STATE [None]
  - RESTLESSNESS [None]
  - ABNORMAL BEHAVIOUR [None]
